FAERS Safety Report 5324137-8 (Version None)
Quarter: 2007Q2

REPORT INFORMATION
  Report Type: 
  Country: None (occurrence: None)
  Receive Date: 20070514
  Receipt Date: 20061121
  Transmission Date: 20071010
  Serious: No
  Sender: FDA-Public Use
  Company Number: A0626969A

PATIENT
  Sex: Male

DRUGS (2)
  1. RELAFEN [Suspect]
     Indication: DRUG USE FOR UNKNOWN INDICATION
     Route: 048
  2. OS-CAL 500 [Suspect]
     Indication: DRUG USE FOR UNKNOWN INDICATION
     Route: 048

REACTIONS (2)
  - BLOOD PRESSURE INCREASED [None]
  - CONSTIPATION [None]
